FAERS Safety Report 6297274-1 (Version None)
Quarter: 2009Q3

REPORT INFORMATION
  Report Type: 
  Country: None (occurrence: None)
  Receive Date: 20090805
  Receipt Date: 20090724
  Transmission Date: 20100115
  Serious: Yes (Hospitalization)
  Sender: FDA-Public Use
  Company Number: US-WYE-H10295909

PATIENT
  Sex: Female
  Weight: 136 kg

DRUGS (7)
  1. ADVIL [Suspect]
     Indication: PROPHYLAXIS
     Dosage: UNKNOWN
     Route: 048
  2. ACETYLSALICYLIC ACID [Suspect]
     Indication: PROPHYLAXIS
     Dosage: UNKNOWN
     Route: 065
  3. MEDROL [Concomitant]
     Indication: MULTIPLE SCLEROSIS RELAPSE
     Dosage: 1 IN 1 DAY
     Route: 048
     Dates: start: 20080801, end: 20080801
  4. SOLU-MEDROL [Concomitant]
     Indication: MULTIPLE SCLEROSIS RELAPSE
     Route: 042
     Dates: start: 20080701, end: 20080701
  5. PREDNISONE [Concomitant]
     Indication: MULTIPLE SCLEROSIS RELAPSE
     Dosage: UNKNOWN
     Route: 065
     Dates: start: 20080901, end: 20081015
  6. REBIF [Suspect]
     Indication: MULTIPLE SCLEROSIS
     Dosage: 4 MCG, 3 TIMES PER WEEK
     Route: 058
     Dates: start: 20080312, end: 20081106
  7. TIZANIDINE HCL [Concomitant]
     Indication: MUSCLE SPASMS
     Dosage: UNKNOWN
     Route: 065
     Dates: end: 20081106

REACTIONS (5)
  - ANXIETY [None]
  - BLOOD PRESSURE DIASTOLIC INCREASED [None]
  - GASTRITIS [None]
  - HEART RATE INCREASED [None]
  - HEPATIC ENZYME INCREASED [None]
